FAERS Safety Report 17127502 (Version 1)
Quarter: 2019Q4

REPORT INFORMATION
  Report Type: Report from Study
  Country: US (occurrence: US)
  Receive Date: 20191209
  Receipt Date: 20191209
  Transmission Date: 20200122
  Serious: Yes (Other)
  Sender: FDA-Public Use
  Company Number: US-GLAXOSMITHKLINE-2018-TSO0841-US

PATIENT
  Age: 65 Year
  Sex: Female

DRUGS (4)
  1. NIRAPARIB [Suspect]
     Active Substance: NIRAPARIB
     Dosage: 200 MG, QAM WITHOUT FOOD
     Route: 048
  2. NIRAPARIB [Suspect]
     Active Substance: NIRAPARIB
     Dosage: 200 MG, QD
     Route: 048
  3. VALTREX S [Concomitant]
     Indication: PRODUCT USED FOR UNKNOWN INDICATION
  4. NIRAPARIB [Suspect]
     Active Substance: NIRAPARIB
     Indication: FALLOPIAN TUBE CANCER
     Dosage: 200 MG, QPM
     Route: 048
     Dates: start: 20180921

REACTIONS (18)
  - Blood pressure increased [Unknown]
  - Haemoglobin decreased [Not Recovered/Not Resolved]
  - Mean cell volume increased [Unknown]
  - Multiple allergies [Unknown]
  - Dry mouth [Not Recovered/Not Resolved]
  - Blood glucose increased [Not Recovered/Not Resolved]
  - Weight decreased [Unknown]
  - Sinus headache [Not Recovered/Not Resolved]
  - Blood count abnormal [Not Recovered/Not Resolved]
  - Underdose [Unknown]
  - Product dose omission [Unknown]
  - Limb discomfort [Recovered/Resolved]
  - Mean cell haemoglobin increased [Unknown]
  - White blood cell count decreased [Not Recovered/Not Resolved]
  - Constipation [Recovering/Resolving]
  - Red blood cell count decreased [Not Recovered/Not Resolved]
  - Platelet count decreased [Not Recovered/Not Resolved]
  - Cataract operation [Unknown]

NARRATIVE: CASE EVENT DATE: 20180925
